FAERS Safety Report 10641066 (Version 1)
Quarter: 2014Q4

REPORT INFORMATION
  Report Type: Spontaneous
  Country: RU (occurrence: RU)
  Receive Date: 20141209
  Receipt Date: 20141209
  Transmission Date: 20150529
  Serious: Yes (Other)
  Sender: FDA-Public Use
  Company Number: RU-ACTAVIS-2014-26102

PATIENT
  Age: 35 Year
  Sex: Male
  Weight: 73 kg

DRUGS (3)
  1. LEVOSTAR [Suspect]
     Active Substance: LEVOCETIRIZINE
     Indication: ACUTE RESPIRATORY DISTRESS SYNDROME
     Dosage: 500 MG, DAILY
     Route: 048
     Dates: start: 20141124, end: 20141125
  2. LYSOBACT [Concomitant]
     Indication: PRODUCT USED FOR UNKNOWN INDICATION
     Dosage: UNK UNK, UNKNOWN
     Route: 065
     Dates: start: 20141124, end: 20141126
  3. TEMPALGIN [Concomitant]
     Indication: HEADACHE
     Dosage: 1, UNKNOWN
     Route: 065
     Dates: start: 20141124

REACTIONS (2)
  - Haematemesis [Recovered/Resolved]
  - Erosive oesophagitis [Unknown]

NARRATIVE: CASE EVENT DATE: 20141124
